FAERS Safety Report 7706998-8 (Version None)
Quarter: 2011Q3

REPORT INFORMATION
  Report Type: 
  Country: None (occurrence: None)
  Receive Date: 20110824
  Receipt Date: 20110815
  Transmission Date: 20111222
  Serious: Yes (Hospitalization, Other)
  Sender: FDA-Public Use
  Company Number: BH-ELI_LILLY_AND_COMPANY-BH201108005407

PATIENT
  Age: 24 Year
  Sex: Male

DRUGS (1)
  1. FLUOXETINE HYDROCHLORIDE [Suspect]
     Indication: PREMATURE EJACULATION
     Dosage: 20 MG, UNK

REACTIONS (2)
  - OESOPHAGITIS [None]
  - OFF LABEL USE [None]
